FAERS Safety Report 15616184 (Version 3)
Quarter: 2019Q1

REPORT INFORMATION
  Report Type: Spontaneous
  Country: JP (occurrence: JP)
  Receive Date: 20181114
  Receipt Date: 20190227
  Transmission Date: 20190417
  Serious: Yes (Death, Hospitalization)
  Sender: FDA-Public Use
  Company Number: JP-TEVA-2018-JP-974391

PATIENT
  Age: 71 Year
  Sex: Male

DRUGS (15)
  1. BENDAMUSTINE HYDROCHLORIDE. [Suspect]
     Active Substance: BENDAMUSTINE HYDROCHLORIDE
     Dosage: 120 MG/M2/DAY, CYCLIC (CYCLE 4)
     Route: 042
     Dates: start: 20180508, end: 20180509
  2. RITUXIMAB. [Suspect]
     Active Substance: RITUXIMAB
     Dosage: 375 MG/M2/DAY, CYCLIC
     Route: 041
     Dates: start: 20180604
  3. BENDAMUSTINE HYDROCHLORIDE. [Suspect]
     Active Substance: BENDAMUSTINE HYDROCHLORIDE
     Dosage: 120 MG/M2/DAY, CYCLIC (CYCLE 3)
     Route: 042
     Dates: start: 20180403, end: 20180404
  4. RITUXIMAB. [Suspect]
     Active Substance: RITUXIMAB
     Dosage: 375 MG/M2/DAY, CYCLIC
     Route: 041
     Dates: start: 20180402
  5. RITUXIMAB. [Suspect]
     Active Substance: RITUXIMAB
     Dosage: 375 MG/M2/DAY, CYCLIC
     Route: 041
     Dates: start: 20180723
  6. ESOMEPRAZOLE MAGNESIUM. [Concomitant]
     Active Substance: ESOMEPRAZOLE MAGNESIUM
     Indication: PROPHYLAXIS AGAINST GASTROINTESTINAL ULCER
     Dosage: 10 MILLIGRAM DAILY;
     Route: 048
     Dates: start: 20180205, end: 20180630
  7. BENDAMUSTINE HYDROCHLORIDE. [Suspect]
     Active Substance: BENDAMUSTINE HYDROCHLORIDE
     Indication: B-CELL LYMPHOMA
     Dosage: 120 MG/M2/DAY, CYCLIC (CYCLE 1)
     Route: 042
     Dates: start: 20180206, end: 20180207
  8. BENDAMUSTINE HYDROCHLORIDE. [Suspect]
     Active Substance: BENDAMUSTINE HYDROCHLORIDE
     Dosage: 120 MG/M2/DAY, CYCLIC (CYCLE 5)
     Route: 042
     Dates: start: 20180605, end: 20180606
  9. SULFAMETHOXAZOLE AND TRIMETHOPRIM [Suspect]
     Active Substance: SULFAMETHOXAZOLE\TRIMETHOPRIM
     Indication: ANTIFUNGAL PROPHYLAXIS
     Dosage: 1 DOSAGE FORMS DAILY;
     Route: 048
     Dates: start: 20180205, end: 20180630
  10. BENDAMUSTINE HYDROCHLORIDE. [Suspect]
     Active Substance: BENDAMUSTINE HYDROCHLORIDE
     Dosage: 120 MG/M2/DAY, CYCLIC (CYCLE 2)
     Route: 042
     Dates: start: 20180306, end: 20180307
  11. BENDAMUSTINE HYDROCHLORIDE. [Suspect]
     Active Substance: BENDAMUSTINE HYDROCHLORIDE
     Dosage: 120 MG/M2/DAY, CYCLIC (CYCLE 6)
     Route: 042
     Dates: start: 20180724, end: 20180725
  12. RITUXIMAB. [Suspect]
     Active Substance: RITUXIMAB
     Dosage: 375 MG/M2/DAY, CYCLIC
     Route: 041
     Dates: start: 20180305
  13. RITUXIMAB. [Suspect]
     Active Substance: RITUXIMAB
     Dosage: 375 MG/M2/DAY, CYCLIC
     Route: 041
     Dates: start: 20180507
  14. MAGNESIUM OXIDE. [Concomitant]
     Active Substance: MAGNESIUM OXIDE
     Indication: CONSTIPATION
     Route: 048
     Dates: start: 20180205, end: 20180330
  15. RITUXIMAB. [Suspect]
     Active Substance: RITUXIMAB
     Indication: B-CELL LYMPHOMA
     Dosage: 375 MG/M2/DAY, CYCLIC
     Route: 041
     Dates: start: 20180205

REACTIONS (3)
  - Hepatic function abnormal [Unknown]
  - Pneumocystis jirovecii pneumonia [Fatal]
  - Cytopenia [Unknown]

NARRATIVE: CASE EVENT DATE: 20180813
